FAERS Safety Report 4689153-8 (Version None)
Quarter: 2005Q2

REPORT INFORMATION
  Report Type: 
  Country: None (occurrence: None)
  Receive Date: 20050608
  Receipt Date: 20050224
  Transmission Date: 20051028
  Serious: No
  Sender: FDA-Public Use
  Company Number: 2005-BP-02996BP

PATIENT
  Sex: Female

DRUGS (17)
  1. SPIRIVA [Suspect]
     Indication: CHRONIC OBSTRUCTIVE PULMONARY DISEASE
     Dosage: 18 MCG (18 MCG), IH
     Route: 055
     Dates: start: 20040701
  2. ADVAIR DISKUS 100/50 [Concomitant]
  3. ALBUTEROL [Concomitant]
  4. LISTERINE MOUTH WASH (LISTERINE) [Concomitant]
  5. SYNTHROID [Concomitant]
  6. VERAPAMIL [Concomitant]
  7. OXYGEN (OXYGEN) [Concomitant]
  8. FOSAMAX [Concomitant]
  9. PREMARIN [Concomitant]
  10. PROVERA [Concomitant]
  11. MIACALCIN [Concomitant]
  12. NASOCORT (BUDESONIDE) [Concomitant]
  13. LASIX [Concomitant]
  14. ASPIRIN [Concomitant]
  15. KLONOPIN [Concomitant]
  16. MIRALAX [Concomitant]
  17. VITAMINS (VITAMINS) [Concomitant]

REACTIONS (1)
  - TOOTH DISCOLOURATION [None]
